FAERS Safety Report 5653190-7 (Version None)
Quarter: 2008Q1

REPORT INFORMATION
  Report Type: 
  Country: None (occurrence: None)
  Receive Date: 20080131
  Receipt Date: 20071206
  Transmission Date: 20080703
  Serious: No
  Sender: FDA-Public Use
  Company Number: US200710005594

PATIENT
  Age: 47 Year
  Sex: Female
  Weight: 67.6 kg

DRUGS (6)
  1. BYETTA [Suspect]
     Indication: TYPE 2 DIABETES MELLITUS
     Dosage: 5 UG, 2/D, SUBCUTANEOUS ; 10 UG, 2/D, SUBCUTANEOUS
     Route: 058
     Dates: start: 20070919, end: 20071018
  2. BYETTA [Suspect]
     Indication: TYPE 2 DIABETES MELLITUS
     Dosage: 5 UG, 2/D, SUBCUTANEOUS ; 10 UG, 2/D, SUBCUTANEOUS
     Route: 058
     Dates: start: 20071019
  3. GLUCOPHAGE [Concomitant]
  4. GLUCOTROL XL [Concomitant]
  5. TOPROL-XL [Concomitant]
  6. COZAAR [Concomitant]

REACTIONS (11)
  - ABDOMINAL PAIN LOWER [None]
  - ASTHENIA [None]
  - BLOOD PRESSURE INCREASED [None]
  - CHILLS [None]
  - DECREASED APPETITE [None]
  - DIARRHOEA [None]
  - DRUG INEFFECTIVE [None]
  - DYSURIA [None]
  - HYPOGLYCAEMIA [None]
  - KIDNEY INFECTION [None]
  - URINE ABNORMALITY [None]
